FAERS Safety Report 14297879 (Version 1)
Quarter: 2017Q4

REPORT INFORMATION
  Report Type: Spontaneous
  Country: DE (occurrence: DE)
  Receive Date: 20171218
  Receipt Date: 20171218
  Transmission Date: 20180321
  Serious: Yes (Hospitalization)
  Sender: FDA-Public Use
  Company Number: PHHY2017DE188064

PATIENT
  Age: 53 Year
  Sex: Male

DRUGS (1)
  1. VALPROAT ?1 A PHARMA [Suspect]
     Active Substance: VALPROATE SODIUM
     Indication: PRODUCT USED FOR UNKNOWN INDICATION
     Dosage: INTAKE OF DOUBLE DOSE
     Route: 048

REACTIONS (2)
  - Epilepsy [Unknown]
  - Accidental overdose [Unknown]

NARRATIVE: CASE EVENT DATE: 2017
